FAERS Safety Report 7556801-4 (Version None)
Quarter: 2011Q2

REPORT INFORMATION
  Report Type: 
  Country: None (occurrence: None)
  Receive Date: 20110620
  Receipt Date: 20110610
  Transmission Date: 20111010
  Serious: Yes (Other)
  Sender: FDA-Public Use
  Company Number: BR-US-EMD SERONO, INC.-7064926

PATIENT
  Sex: Female

DRUGS (5)
  1. CAPTOPRIL [Concomitant]
  2. MANTIDAN [Concomitant]
  3. REBIF [Suspect]
     Indication: SECONDARY PROGRESSIVE MULTIPLE SCLEROSIS
     Dates: start: 20100625
  4. IBUPROFEN [Concomitant]
  5. CYMBALTA [Concomitant]

REACTIONS (5)
  - OPTIC NEURITIS [None]
  - MUSCULOSKELETAL PAIN [None]
  - MEMORY IMPAIRMENT [None]
  - INJECTION SITE ERYTHEMA [None]
  - FEELING HOT [None]
